FAERS Safety Report 7953936-9 (Version None)
Quarter: 2011Q4

REPORT INFORMATION
  Report Type: 
  Country: None (occurrence: None)
  Receive Date: 20111202
  Receipt Date: 20111125
  Transmission Date: 20120403
  Serious: Yes (Other)
  Sender: FDA-Public Use
  Company Number: DE-PFIZER INC-2011289457

PATIENT
  Age: 82 Year
  Sex: Female
  Weight: 61 kg

DRUGS (4)
  1. QUETIAPINE [Concomitant]
     Dosage: 150 MG/D
  2. QUETIAPINE [Concomitant]
     Indication: DEPRESSION
     Dosage: 300 MG/D
  3. VENLAFAXINE HCL [Suspect]
     Indication: DEPRESSION
     Dosage: 75 MG/D
  4. DONEPEZIL [Concomitant]
     Indication: DEPRESSION
     Dosage: 5 MG/D

REACTIONS (2)
  - CARDIAC ARREST [None]
  - DRUG LEVEL ABOVE THERAPEUTIC [None]
